FAERS Safety Report 22362441 (Version 18)
Quarter: 2025Q2

REPORT INFORMATION
  Report Type: Spontaneous
  Country: US (occurrence: US)
  Receive Date: 20230524
  Receipt Date: 20250618
  Transmission Date: 20250716
  Serious: Yes (Hospitalization, Other)
  Sender: DAIICHI
  Company Number: US-DAIICHI SANKYO, INC.-DSU-2023-119868AA

PATIENT
  Sex: Female

DRUGS (2)
  1. TURALIO [Suspect]
     Active Substance: PEXIDARTINIB HYDROCHLORIDE
     Indication: Connective tissue neoplasm
     Dosage: 250 MG, BID
     Route: 048
     Dates: start: 20230516
  2. TURALIO [Suspect]
     Active Substance: PEXIDARTINIB HYDROCHLORIDE
     Indication: Soft tissue neoplasm
     Dosage: 125 MG, BID
     Route: 048
     Dates: start: 20241104

REACTIONS (28)
  - Narcolepsy [Not Recovered/Not Resolved]
  - Neoplasm progression [Not Recovered/Not Resolved]
  - Adverse drug reaction [Not Recovered/Not Resolved]
  - Pain in extremity [Not Recovered/Not Resolved]
  - Somnolence [Not Recovered/Not Resolved]
  - Emotional disorder [Not Recovered/Not Resolved]
  - Hypoaesthesia [Not Recovered/Not Resolved]
  - Surgery [Unknown]
  - Paraesthesia [Not Recovered/Not Resolved]
  - Brain fog [Not Recovered/Not Resolved]
  - Regurgitation [Not Recovered/Not Resolved]
  - Eye disorder [Not Recovered/Not Resolved]
  - Eye movement disorder [Not Recovered/Not Resolved]
  - Influenza [Not Recovered/Not Resolved]
  - Eye swelling [Not Recovered/Not Resolved]
  - Vomiting [Recovered/Resolved]
  - Nausea [Recovered/Resolved]
  - Swelling face [Not Recovered/Not Resolved]
  - Constipation [Recovered/Resolved]
  - Fatigue [Not Recovered/Not Resolved]
  - Vomiting [Not Recovered/Not Resolved]
  - Nausea [Not Recovered/Not Resolved]
  - Cognitive disorder [Not Recovered/Not Resolved]
  - Product dose omission issue [Recovered/Resolved]
  - Product dose omission issue [Not Recovered/Not Resolved]
  - Product dose omission issue [Not Recovered/Not Resolved]
  - Product availability issue [Not Recovered/Not Resolved]
  - Product dose omission issue [Not Recovered/Not Resolved]

NARRATIVE: CASE EVENT DATE: 20230101
